FAERS Safety Report 8285352-7 (Version None)
Quarter: 2012Q2

REPORT INFORMATION
  Report Type: 
  Country: None (occurrence: None)
  Receive Date: 20120413
  Receipt Date: 20120412
  Transmission Date: 20120825
  Serious: No
  Sender: FDA-Public Use
  Company Number: US-PFIZER INC-2012091757

PATIENT
  Sex: Female

DRUGS (15)
  1. ZOLOFT [Suspect]
     Indication: DEPRESSION
     Dosage: UNK
  2. ULTRAM [Concomitant]
     Indication: PAIN
     Dosage: 1 TO 2 TABS OF 50MG EVERY 6 HOURS, AS NEEDED
     Route: 048
  3. VALIUM [Suspect]
     Indication: SLEEP DISORDER
     Dosage: 5 MG, DAILY, AT NIGHT
  4. ASCORBIC ACID [Concomitant]
     Indication: HYPOVITAMINOSIS
     Dosage: UNK, DAILY
  5. VITAMIN D [Concomitant]
     Indication: HYPOVITAMINOSIS
     Dosage: UNK, 2X/DAY
  6. GLUCOSE [Concomitant]
     Dosage: UNK
  7. ZOLOFT [Suspect]
     Dosage: 100 MG, DAILY
     Dates: start: 20101101
  8. ZOLOFT [Suspect]
     Dosage: 150 MG, DAILY
     Dates: start: 20120201, end: 20120101
  9. VITAMIN B COMPLEX CAP [Concomitant]
     Indication: HYPOVITAMINOSIS
     Dosage: UNK
  10. VALIUM [Suspect]
     Indication: EMOTIONAL DISORDER
  11. VITAMIN E [Concomitant]
     Indication: HYPOVITAMINOSIS
     Dosage: UNK
  12. CENTRUM [Concomitant]
     Indication: HYPOVITAMINOSIS
     Dosage: UNK
     Route: 048
  13. VITAMIN B6 [Concomitant]
     Indication: HYPOVITAMINOSIS
     Dosage: UNK, 4X/DAY
  14. VITAMIN A [Suspect]
     Indication: HYPOVITAMINOSIS
     Dosage: UNK, DAILY
  15. VITAMIN B-12 [Concomitant]
     Indication: HYPOVITAMINOSIS
     Dosage: UNK

REACTIONS (4)
  - FEELING ABNORMAL [None]
  - NAUSEA [None]
  - DIZZINESS [None]
  - TREMOR [None]
